FAERS Safety Report 6701217-3 (Version None)
Quarter: 2010Q2

REPORT INFORMATION
  Report Type: 
  Country: None (occurrence: None)
  Receive Date: 20100427
  Receipt Date: 20100413
  Transmission Date: 20101027
  Serious: Yes (Other)
  Sender: FDA-Public Use
  Company Number: TUK2010A00014

PATIENT
  Age: 72 Year
  Sex: Female

DRUGS (12)
  1. ACTOS [Suspect]
     Indication: TYPE 2 DIABETES MELLITUS
     Dosage: 30 MG (1 IN 1 D)
     Dates: start: 20070201, end: 20070501
  2. SUPRALIP (FENOFIBRATE) [Suspect]
     Indication: DRUG USE FOR UNKNOWN INDICATION
     Dosage: 160 MG (1 IN 1 D)
     Dates: start: 20030501, end: 20060901
  3. SUPRALIP (FENOFIBRATE) [Suspect]
     Indication: DRUG USE FOR UNKNOWN INDICATION
     Dosage: 160 MG (1 IN 1 D)
     Dates: start: 20060901
  4. ROSIGLITAZONE [Suspect]
     Indication: TYPE 2 DIABETES MELLITUS
     Dosage: 4 MG (1 IN 1 D), 8 MG (1 IN 1 D)
     Dates: start: 20050301, end: 20050601
  5. ROSIGLITAZONE [Suspect]
     Indication: TYPE 2 DIABETES MELLITUS
     Dosage: 4 MG (1 IN 1 D), 8 MG (1 IN 1 D)
     Dates: start: 20050601, end: 20060901
  6. SIMVASTATIN [Suspect]
     Indication: TYPE 2 DIABETES MELLITUS
     Dosage: ORAL
     Route: 048
  7. ATORVASTATIN CALCIUM [Suspect]
     Indication: DRUG USE FOR UNKNOWN INDICATION
  8. ROSUVASTATIN (ROSUVASTATIN) [Suspect]
     Indication: DRUG USE FOR UNKNOWN INDICATION
  9. ROSUVASTATIN (ROSUVASTATIN) [Suspect]
     Indication: DRUG USE FOR UNKNOWN INDICATION
  10. METFORMIN HCL [Suspect]
     Indication: TYPE 2 DIABETES MELLITUS
  11. ROSUVASTATIN (ROSUVASTATIN) [Concomitant]
  12. METFORMIN HCL [Concomitant]

REACTIONS (4)
  - DIABETES MELLITUS INADEQUATE CONTROL [None]
  - HIGH DENSITY LIPOPROTEIN DECREASED [None]
  - INSULIN RESISTANCE [None]
  - MYALGIA [None]
